FAERS Safety Report 17239617 (Version 1)
Quarter: 2020Q1

REPORT INFORMATION
  Report Type: Spontaneous
  Country: IN (occurrence: IN)
  Receive Date: 20200106
  Receipt Date: 20200106
  Transmission Date: 20200409
  Serious: Yes (Other)
  Sender: FDA-Public Use
  Company Number: IN-INSUD PHARMA-1912IN00187

PATIENT

DRUGS (6)
  1. ONDANSETRON [Concomitant]
     Active Substance: ONDANSETRON
     Indication: DYSPEPSIA
     Dosage: 4 MILLIGRAMS AS NEEDED
     Route: 048
  2. NUVESSA [Suspect]
     Active Substance: METRONIDAZOLE
     Indication: HEPATIC AMOEBIASIS
     Dosage: 800 MILLIGRAM THREE TIMES DAILY
     Route: 065
  3. RANITIDINE. [Concomitant]
     Active Substance: RANITIDINE
     Indication: DYSPEPSIA
     Dosage: 150 MILLIGRAM TWICE DAILY
     Route: 048
  4. ONDANSETRON [Concomitant]
     Active Substance: ONDANSETRON
     Indication: NAUSEA
  5. RANITIDINE. [Concomitant]
     Active Substance: RANITIDINE
     Indication: NAUSEA
  6. PARACETAMOL [Concomitant]
     Active Substance: ACETAMINOPHEN
     Indication: PYREXIA
     Dosage: 650 MILLIGRAM AS NEEDED
     Route: 048

REACTIONS (6)
  - Somnolence [Recovering/Resolving]
  - Nervous system disorder [Recovering/Resolving]
  - Fall [Recovering/Resolving]
  - Dysarthria [Recovered/Resolved]
  - Neurotoxicity [Recovering/Resolving]
  - Ataxia [Recovering/Resolving]
